FAERS Safety Report 7628728-0 (Version None)
Quarter: 2011Q3

REPORT INFORMATION
  Report Type: 
  Country: None (occurrence: None)
  Receive Date: 20110714
  Receipt Date: 20110629
  Transmission Date: 20111222
  Serious: Yes (Other)
  Sender: FDA-Public Use
  Company Number: DSA_47106_2011

PATIENT

DRUGS (4)
  1. ENALAPRIL MALEATE [Suspect]
     Indication: CARDIAC FAILURE
     Dosage: 0.2 MG/KG, DAILY, ORAL
     Route: 048
  2. DOPAMINE HYDROCHLORIDE [Concomitant]
  3. CORETEC (CORETEC-OLPRINONE HYDROCHLORIDE HYDRATE INJECTION) [Suspect]
     Indication: CARDIAC FAILURE
     Dosage: 0.02 MCG/KG/MIN/DAY, INTRAVENOUS
     Route: 042
  4. DOBUTAMINE HYDROCHLORIDE [Concomitant]

REACTIONS (3)
  - CARDIOMEGALY [None]
  - ANURIA [None]
  - BLOOD PRESSURE SYSTOLIC DECREASED [None]
